FAERS Safety Report 6367727-6 (Version None)
Quarter: 2009Q3

REPORT INFORMATION
  Report Type: 
  Country: None (occurrence: None)
  Receive Date: 20090921
  Receipt Date: 20090915
  Transmission Date: 20100115
  Serious: Yes (Other)
  Sender: FDA-Public Use
  Company Number: PHHY2009US36467

PATIENT
  Sex: Female
  Weight: 72.562 kg

DRUGS (6)
  1. MYFORTIC [Suspect]
     Indication: HEART TRANSPLANT
     Dosage: 180 MG, BID
     Route: 048
     Dates: start: 20070130, end: 20080701
  2. PROGRAF [Concomitant]
     Indication: HEART TRANSPLANT
     Dosage: 4 MG AM, 5 MG PM
     Route: 048
  3. MICARDIS HCT [Concomitant]
  4. PRAVACHOL [Concomitant]
     Dosage: UNK
  5. ASPIRIN [Concomitant]
  6. VITAMIN TAB [Concomitant]

REACTIONS (2)
  - ABORTION SPONTANEOUS [None]
  - DRUG EXPOSURE DURING PREGNANCY [None]
